FAERS Safety Report 5354758-8 (Version None)
Quarter: 2007Q2

REPORT INFORMATION
  Report Type: 
  Country: None (occurrence: None)
  Receive Date: 20070612
  Receipt Date: 20070531
  Transmission Date: 20071010
  Serious: Yes (Hospitalization, Other)
  Sender: FDA-Public Use
  Company Number: FR-PFIZER INC-2007026605

PATIENT
  Sex: Female

DRUGS (3)
  1. ZOLOFT [Suspect]
  2. HYDROXYZINE HYDROCHLORIDE [Concomitant]
  3. BROMAZEPAM [Concomitant]

REACTIONS (4)
  - DISINHIBITION [None]
  - GAMMA-GLUTAMYLTRANSFERASE INCREASED [None]
  - HAEMANGIOMA OF LIVER [None]
  - TRANSAMINASES INCREASED [None]
